FAERS Safety Report 13192180 (Version 1)
Quarter: 2017Q1

REPORT INFORMATION
  Report Type: Spontaneous
  Country: US (occurrence: US)
  Receive Date: 20170206
  Receipt Date: 20170206
  Transmission Date: 20170428
  Serious: No
  Sender: FDA-Public Use
  Company Number: None

PATIENT
  Age: 71 Year
  Sex: Female

DRUGS (1)
  1. FARYDAK [Suspect]
     Active Substance: PANOBINOSTAT
     Indication: PLASMA CELL MYELOMA
     Dosage: DAILY ON DAYS 1,3,5,8,10 + 12
     Route: 048
     Dates: start: 20161216, end: 20161226

REACTIONS (2)
  - Cerebral haemorrhage [None]
  - Fall [None]

NARRATIVE: CASE EVENT DATE: 20161226
